FAERS Safety Report 9907571 (Version 2)
Quarter: 2014Q3

REPORT INFORMATION
  Report Type: Spontaneous
  Country: US (occurrence: US)
  Receive Date: 20140218
  Receipt Date: 20140728
  Transmission Date: 20150326
  Serious: Yes (Death)
  Sender: FDA-Public Use
  Company Number: US-ROCHE-1352262

PATIENT
  Age: 61 Year
  Sex: Male

DRUGS (1)
  1. XELODA [Suspect]
     Active Substance: CAPECITABINE
     Indication: COLON CANCER
     Dosage: 2 WEEK ON AND 2 WEEK OFF.
     Route: 048
     Dates: start: 20130817, end: 20131227

REACTIONS (2)
  - Disease progression [Fatal]
  - Death [Fatal]

NARRATIVE: CASE EVENT DATE: 20131227
